FAERS Safety Report 25413065 (Version 1)
Quarter: 2025Q2

REPORT INFORMATION
  Report Type: Spontaneous
  Country: US (occurrence: None)
  Receive Date: 20250606
  Receipt Date: 20250606
  Transmission Date: 20250716
  Serious: No
  Sender: FDA-CTU
  Company Number: None

PATIENT
  Age: 18 Year
  Sex: Female

DRUGS (1)
  1. SINGULAIR [Suspect]
     Active Substance: MONTELUKAST SODIUM
     Indication: Rhinitis allergic
     Dates: start: 20120409, end: 20120709

REACTIONS (5)
  - Mood altered [None]
  - Hallucination, visual [None]
  - Suicidal ideation [None]
  - Product communication issue [None]
  - Aggression [None]

NARRATIVE: CASE EVENT DATE: 20120509
